FAERS Safety Report 7645559-6 (Version None)
Quarter: 2011Q3

REPORT INFORMATION
  Report Type: 
  Country: None (occurrence: None)
  Receive Date: 20110729
  Receipt Date: 20110722
  Transmission Date: 20111222
  Serious: Yes (Hospitalization, Other)
  Sender: FDA-Public Use
  Company Number: IE-ROCHE-777381

PATIENT
  Sex: Female
  Weight: 66.9 kg

DRUGS (7)
  1. ACTEMRA [Suspect]
     Route: 042
     Dates: start: 20100914
  2. ACTEMRA [Suspect]
     Route: 042
     Dates: start: 20101216
  3. ACTEMRA [Suspect]
     Route: 042
     Dates: start: 20110210
  4. GENTACIN [Concomitant]
     Dosage: DRUG REPORTED : GENTAC
     Route: 048
  5. ACTEMRA [Suspect]
     Route: 042
     Dates: start: 20110310
  6. ACTEMRA [Suspect]
     Route: 042
     Dates: start: 20110113
  7. LEVOTHYROXINE SODIUM [Concomitant]
     Route: 048

REACTIONS (3)
  - CROHN'S DISEASE [None]
  - COLITIS [None]
  - PNEUMONIA [None]
